FAERS Safety Report 16693210 (Version 1)
Quarter: 2019Q4

REPORT INFORMATION
  Report Type: Spontaneous
  Country: US (occurrence: US)
  Receive Date: 20190810
  Receipt Date: 20190810
  Transmission Date: 20200122
  Serious: Yes (Disabling)
  Sender: FDA-Public Use
  Company Number: None

PATIENT
  Age: 44 Year
  Sex: Female
  Weight: 79.2 kg

DRUGS (1)
  1. TOPIRAMATE. [Suspect]
     Active Substance: TOPIRAMATE
     Indication: MIGRAINE PROPHYLAXIS
     Dosage: ?          QUANTITY:1 TABLET(S);?
     Route: 048

REACTIONS (10)
  - Memory impairment [None]
  - Nausea [None]
  - Diarrhoea [None]
  - Fatigue [None]
  - Insomnia [None]
  - Decreased appetite [None]
  - Dizziness [None]
  - Weight decreased [None]
  - Somnolence [None]
  - Abdominal discomfort [None]

NARRATIVE: CASE EVENT DATE: 20190803
